FAERS Safety Report 7974820-0 (Version None)
Quarter: 2011Q4

REPORT INFORMATION
  Report Type: 
  Country: None (occurrence: None)
  Receive Date: 20111213
  Receipt Date: 20111206
  Transmission Date: 20120403
  Serious: Yes (Other)
  Sender: FDA-Public Use
  Company Number: FR-ASTRAZENECA-2011SE74470

PATIENT
  Age: 944 Month
  Sex: Female

DRUGS (1)
  1. IRESSA [Suspect]
     Indication: ADENOCARCINOMA
     Route: 048
     Dates: start: 20110125, end: 20110301

REACTIONS (1)
  - CYTOLYTIC HEPATITIS [None]
